FAERS Safety Report 15540740 (Version 31)
Quarter: 2020Q2

REPORT INFORMATION
  Report Type: Report from Study
  Country: CN (occurrence: CN)
  Receive Date: 20181023
  Receipt Date: 20200519
  Transmission Date: 20200713
  Serious: Yes (Hospitalization)
  Sender: FDA-Public Use
  Company Number: CN-ROCHE-2201634

PATIENT
  Age: 61 Year
  Sex: Female
  Weight: 56.5 kg

DRUGS (63)
  1. SODIUM CHLORIDE. [Concomitant]
     Active Substance: SODIUM CHLORIDE
     Route: 065
     Dates: start: 20181029, end: 20181029
  2. OMEPRAZOLE SODIUM [Concomitant]
     Active Substance: OMEPRAZOLE SODIUM
     Dosage: START DATE 30/SEP/2018
     Route: 065
     Dates: start: 20180929, end: 20180930
  3. DEXAMETHASONE. [Concomitant]
     Active Substance: DEXAMETHASONE
     Route: 065
     Dates: start: 20190130, end: 20190130
  4. PALONOSETRON. [Concomitant]
     Active Substance: PALONOSETRON HYDROCHLORIDE
     Indication: VOMITING
     Route: 065
     Dates: start: 20181029, end: 20181101
  5. GLUCOSE [Concomitant]
     Active Substance: DEXTROSE
     Indication: NUTRITIONAL SUPPLEMENTATION
     Route: 065
     Dates: start: 20181029, end: 20181101
  6. IODIXANOL. [Concomitant]
     Active Substance: IODIXANOL
     Route: 065
     Dates: start: 20200115, end: 20200115
  7. CINNAMON [CINNAMOMUM CASSIA] [Concomitant]
     Active Substance: CINNAMON\HERBALS
     Route: 065
     Dates: start: 20190702
  8. SODIUM CHLORIDE. [Concomitant]
     Active Substance: SODIUM CHLORIDE
     Indication: NUTRITIONAL SUPPLEMENTATION
     Route: 065
     Dates: start: 20180930, end: 20181003
  9. DEXAMETHASONE. [Concomitant]
     Active Substance: DEXAMETHASONE
     Route: 048
     Dates: start: 20190110, end: 20190111
  10. DIPHENHYDRAMINE HYDROCHLORIDE. [Concomitant]
     Active Substance: DIPHENHYDRAMINE HYDROCHLORIDE
     Route: 065
     Dates: start: 20181029, end: 20181029
  11. PROMETHAZINE [Concomitant]
     Active Substance: PROMETHAZINE HYDROCHLORIDE
     Route: 065
     Dates: start: 20181018, end: 20181018
  12. CALAMINE [Concomitant]
     Active Substance: CALAMINE\FERRIC OXIDE RED\ZINC OXIDE
     Route: 065
     Dates: start: 20181011, end: 20181014
  13. BLINDED ATEZOLIZUMAB [Suspect]
     Active Substance: ATEZOLIZUMAB
     Dosage: ON 29/OCT/2018, SHE RECEIVED HER MOST RECENT DOSE MG OF BLINDED ATEZOLIZUMAB PRIOR TO SECOND EPISODE
     Route: 042
     Dates: start: 20181029
  14. LORATADINE. [Concomitant]
     Active Substance: LORATADINE
     Indication: RASH
     Route: 065
     Dates: start: 20180924, end: 20180926
  15. RECOMBINANT HUMAN THROMBOPOIETIN [Concomitant]
     Active Substance: THROMBOPOIETIN
     Route: 065
     Dates: start: 20181015, end: 20181022
  16. OMEPRAZOLE SODIUM [Concomitant]
     Active Substance: OMEPRAZOLE SODIUM
     Route: 065
     Dates: start: 20181029, end: 20181101
  17. LIDOCAINE HYDROCHLORIDE. [Concomitant]
     Active Substance: LIDOCAINE HYDROCHLORIDE
     Indication: LOCAL ANAESTHESIA
     Route: 065
     Dates: start: 20180925, end: 20180925
  18. DEXAMETHASONE. [Concomitant]
     Active Substance: DEXAMETHASONE
     Route: 055
     Dates: start: 20181016, end: 20181016
  19. GLUCOSE [Concomitant]
     Active Substance: DEXTROSE
     Route: 065
     Dates: start: 20190111, end: 20190113
  20. PROMETHAZINE [Concomitant]
     Active Substance: PROMETHAZINE HYDROCHLORIDE
     Route: 065
     Dates: start: 20190204, end: 20190204
  21. REHMANNIA [Concomitant]
     Route: 065
     Dates: start: 20190702
  22. CALAMINE [Concomitant]
     Active Substance: CALAMINE\FERRIC OXIDE RED\ZINC OXIDE
     Indication: RASH
     Route: 065
     Dates: start: 20181111, end: 20181114
  23. BEVACIZUMAB. [Suspect]
     Active Substance: BEVACIZUMAB
     Indication: OVARIAN CANCER STAGE III
     Dosage: ON 29/OCT/2018, SHE RECEIVED HER MOST RECENT DOSE OF BEVACIZUMAB PRIOR TO THE SECOND EPISODE OF MYEL
     Route: 042
     Dates: start: 20181029
  24. GLYCYRRHIZIN [GLYCYRRHIZA GLABRA] [Concomitant]
     Active Substance: GLYCYRRHIZA GLABRA\HERBALS
     Route: 065
     Dates: start: 20181111, end: 20181118
  25. RECOMBINANT HUMAN THROMBOPOIETIN [Concomitant]
     Active Substance: THROMBOPOIETIN
     Indication: PLATELET COUNT INCREASED
     Route: 065
     Dates: start: 20180926, end: 20180928
  26. COMPOUND SODIUM CHLORIDE [CALCIUM CHLORIDE;POTASSIUM CHLORIDE;SODIUM C [Concomitant]
     Route: 065
     Dates: start: 20180929, end: 20181003
  27. SODIUM CHLORIDE. [Concomitant]
     Active Substance: SODIUM CHLORIDE
     Route: 065
     Dates: start: 20190111, end: 20190113
  28. OMEPRAZOLE SODIUM [Concomitant]
     Active Substance: OMEPRAZOLE SODIUM
     Route: 065
     Dates: start: 20180929, end: 20181101
  29. DEXAMETHASONE. [Concomitant]
     Active Substance: DEXAMETHASONE
     Route: 055
     Dates: start: 20181018, end: 20181018
  30. PROMETHAZINE [Concomitant]
     Active Substance: PROMETHAZINE HYDROCHLORIDE
     Route: 065
     Dates: start: 20190130, end: 20190130
  31. PROMETHAZINE [Concomitant]
     Active Substance: PROMETHAZINE HYDROCHLORIDE
     Route: 065
     Dates: start: 20181016, end: 20181016
  32. PROMETHAZINE HYDROCHLORIDE. [Concomitant]
     Active Substance: PROMETHAZINE HYDROCHLORIDE
     Route: 065
     Dates: start: 20181016, end: 20181016
  33. BUPLEURUM [BUPLEURUM FALCATUM] [Concomitant]
     Route: 065
     Dates: start: 20190702
  34. LICORICE [GLYCYRRHIZA GLABRA] [Concomitant]
     Active Substance: GLYCYRRHIZA GLABRA\HERBALS
     Route: 065
     Dates: start: 20190702
  35. PACLITAXEL. [Suspect]
     Active Substance: PACLITAXEL
     Dosage: ON 29/OCT/2018, SHE RECEIVED HER MOST RECENT DOSE 216.48 MG OF PACLITAXEL PRIOR TO SECOND EPISODE OF
     Route: 042
     Dates: start: 20181029
  36. GADOPENTETATE DIMEGLUMINE. [Concomitant]
     Active Substance: GADOPENTETATE DIMEGLUMINE
     Route: 065
     Dates: start: 20181024, end: 20181024
  37. RECOMBINANT HUMAN THROMBOPOIETIN [Concomitant]
     Active Substance: THROMBOPOIETIN
     Route: 065
     Dates: start: 20181001, end: 20181101
  38. PALONOSETRON HYDROCHLORIDE. [Concomitant]
     Active Substance: PALONOSETRON HYDROCHLORIDE
     Route: 065
     Dates: start: 20190110, end: 20190110
  39. OMEPRAZOLE SODIUM [Concomitant]
     Active Substance: OMEPRAZOLE SODIUM
     Route: 065
     Dates: start: 20190111, end: 20190113
  40. DEXAMETHASONE. [Concomitant]
     Active Substance: DEXAMETHASONE
     Indication: ALLERGY PROPHYLAXIS
     Route: 065
     Dates: start: 20180929, end: 20180930
  41. DEXAMETHASONE. [Concomitant]
     Active Substance: DEXAMETHASONE
     Route: 048
     Dates: start: 20181029, end: 20181030
  42. DEXAMETHASONE. [Concomitant]
     Active Substance: DEXAMETHASONE
     Route: 065
     Dates: start: 20190204, end: 20190204
  43. CIMETIDINE [Concomitant]
     Active Substance: CIMETIDINE
     Route: 065
     Dates: start: 20190111, end: 20190111
  44. CIMETIDINE [Concomitant]
     Active Substance: CIMETIDINE
     Route: 065
     Dates: start: 20181029, end: 20181029
  45. PROMETHAZINE HYDROCHLORIDE. [Concomitant]
     Active Substance: PROMETHAZINE HYDROCHLORIDE
     Route: 065
     Dates: start: 20181018, end: 20181018
  46. CARBOPLATIN. [Suspect]
     Active Substance: CARBOPLATIN
     Indication: OVARIAN CANCER STAGE III
     Dosage: ON 30/SEP/2018, SHE RECIVED HER MOST RECENT DOSE 732.3 MG OF CARBOPLATIN PRIOR TO FIRST EPISODE OF M
     Route: 042
     Dates: start: 20180930
  47. LORATADINE. [Concomitant]
     Active Substance: LORATADINE
     Route: 065
     Dates: start: 20181011, end: 20181014
  48. DEXAMETHASONE. [Concomitant]
     Active Substance: DEXAMETHASONE
     Dosage: DOSE-19.5 (UNIT NOT REPORTED)
     Route: 048
     Dates: start: 20181028, end: 20181029
  49. IODIXANOL. [Concomitant]
     Active Substance: IODIXANOL
     Route: 065
     Dates: start: 20190203, end: 20190203
  50. EPHEDRA [Concomitant]
     Active Substance: EPHEDRA
     Route: 065
     Dates: start: 20190702
  51. RECOMBINANT HUMAN THROMBOPOIETIN [Concomitant]
     Active Substance: THROMBOPOIETIN
     Route: 058
     Dates: start: 20181111, end: 20181117
  52. PALONOSETRON HYDROCHLORIDE. [Concomitant]
     Active Substance: PALONOSETRON HYDROCHLORIDE
     Indication: PROPHYLAXIS OF NAUSEA AND VOMITING
     Route: 065
     Dates: start: 20180930, end: 20181003
  53. PALONOSETRON HYDROCHLORIDE. [Concomitant]
     Active Substance: PALONOSETRON HYDROCHLORIDE
     Route: 065
     Dates: start: 20181029, end: 20181101
  54. DIPHENHYDRAMINE HYDROCHLORIDE. [Concomitant]
     Active Substance: DIPHENHYDRAMINE HYDROCHLORIDE
     Indication: ALLERGY PROPHYLAXIS
     Route: 065
     Dates: start: 20180930, end: 20180930
  55. DIPHENHYDRAMINE HYDROCHLORIDE. [Concomitant]
     Active Substance: DIPHENHYDRAMINE HYDROCHLORIDE
     Route: 065
     Dates: start: 20190111, end: 20190111
  56. CODONOPSIS [Concomitant]
     Route: 065
     Dates: start: 20190702
  57. BLINDED ATEZOLIZUMAB [Suspect]
     Active Substance: ATEZOLIZUMAB
     Indication: OVARIAN CANCER STAGE III
     Dosage: ON 30/SEP/2018, SHE RECEIVED HER MOST RECENT DOSE MG OF BLINDED ATEZOLIZUMAB PRIOR TO FIRST EPISODE
     Route: 042
     Dates: start: 20180930
  58. PACLITAXEL. [Suspect]
     Active Substance: PACLITAXEL
     Indication: OVARIAN CANCER STAGE III
     Dosage: ON 30/SEP/2018, SHE RECEIVED HER MOST RECENT DOSE 270.6MG OF PACLITAXEL PRIOR TO FIRST EPISODE OF MY
     Route: 042
     Dates: start: 20180930
  59. CARBOPLATIN. [Suspect]
     Active Substance: CARBOPLATIN
     Dosage: TARGET AREA UNDER THE CURVE (AUC) OF 6  (MG/ML/MIN) ?ON 29/OCT/2018, SHE RECIVED HER MOST RECENT DOS
     Route: 042
     Dates: start: 20181029
  60. COMPOUND SODIUM CHLORIDE [CALCIUM CHLORIDE;POTASSIUM CHLORIDE;SODIUM C [Concomitant]
     Indication: NUTRITIONAL SUPPLEMENTATION
     Route: 065
     Dates: start: 20181029, end: 20181101
  61. CIMETIDINE [Concomitant]
     Active Substance: CIMETIDINE
     Route: 065
     Dates: start: 20180930, end: 20180930
  62. PALONOSETRON. [Concomitant]
     Active Substance: PALONOSETRON HYDROCHLORIDE
     Route: 065
     Dates: start: 20190111, end: 20190113
  63. PANTOPRAZOLE [Concomitant]
     Active Substance: PANTOPRAZOLE
     Route: 065
     Dates: start: 20181112, end: 20181118

REACTIONS (2)
  - Bone marrow failure [Not Recovered/Not Resolved]
  - Platelet count decreased [Recovered/Resolved]

NARRATIVE: CASE EVENT DATE: 20181011
